FAERS Safety Report 5263997-6 (Version None)
Quarter: 2007Q1

REPORT INFORMATION
  Report Type: 
  Country: None (occurrence: None)
  Receive Date: 20061213
  Receipt Date: 20060307
  Transmission Date: 20070707
  Serious: Yes (Other)
  Sender: FDA-Public Use
  Company Number: 2006UW03861

PATIENT
  Age: 51 Year
  Sex: Female
  Weight: 58.59 kg

DRUGS (7)
  1. IRESSA [Suspect]
     Indication: NON-SMALL CELL LUNG CANCER
     Dosage: 250 MG DAILY PO
     Route: 048
     Dates: start: 20040801
  2. CELEBREX [Concomitant]
  3. ZOMETA [Concomitant]
  4. PAXIL [Concomitant]
  5. SINGULAIR [Concomitant]
  6. NEOMYCIN [Concomitant]
  7. CORTISONE [Concomitant]

REACTIONS (4)
  - ALOPECIA [None]
  - DRY EYE [None]
  - NAIL GROWTH ABNORMAL [None]
  - RASH [None]
